FAERS Safety Report 7099555-0 (Version None)
Quarter: 2010Q4

REPORT INFORMATION
  Report Type: 
  Country: None (occurrence: None)
  Receive Date: 20101105
  Receipt Date: 20101026
  Transmission Date: 20110411
  Serious: Yes (Death, Hospitalization)
  Sender: FDA-Public Use
  Company Number: 2010P1002244

PATIENT
  Age: 33 Year
  Sex: Female
  Weight: 60 kg

DRUGS (6)
  1. COLCHICINE [Suspect]
     Indication: OVERDOSE
     Dosage: 20 MG; X1; PO
     Route: 048
  2. IBUPROFEN [Suspect]
     Indication: OVERDOSE
     Dosage: 8 G; X1; PO
     Route: 048
  3. DICLOFENAC (NO PREF. NAME) [Suspect]
     Indication: OVERDOSE
     Dosage: 1 G; X1; PO
     Route: 048
  4. ATORVASTATIN (NO PREF. NAME) [Suspect]
     Indication: OVERDOSE
     Dosage: 100 MG; X1; PO
     Route: 048
  5. FUROSEMIDE [Suspect]
     Indication: OVERDOSE
     Dosage: 400 MG; X1; PO
     Route: 048
  6. PROPOFOL [Suspect]
     Indication: MECHANICAL VENTILATION
     Dosage: 200 MG/HR

REACTIONS (23)
  - ACUTE LUNG INJURY [None]
  - BRAIN OEDEMA [None]
  - CARDIAC ARREST [None]
  - CONTINUOUS HAEMODIAFILTRATION [None]
  - DRUG INTERACTION [None]
  - DRUG TOXICITY [None]
  - ENTEROCOLITIS [None]
  - ESCHERICHIA TEST POSITIVE [None]
  - HAEMORRHAGE [None]
  - HYPERAMMONAEMIC ENCEPHALOPATHY [None]
  - HYPERLIPIDAEMIA [None]
  - HYPERTRIGLYCERIDAEMIA [None]
  - ILEUS [None]
  - PANCYTOPENIA [None]
  - PLATELET COUNT INCREASED [None]
  - PROPOFOL INFUSION SYNDROME [None]
  - PULMONARY ALVEOLAR HAEMORRHAGE [None]
  - RENAL FAILURE ACUTE [None]
  - RHABDOMYOLYSIS [None]
  - SELF-MEDICATION [None]
  - SHOCK HAEMORRHAGIC [None]
  - SMALL INTESTINAL HAEMORRHAGE [None]
  - UNRESPONSIVE TO STIMULI [None]
